FAERS Safety Report 7082876-5 (Version None)
Quarter: 2010Q4

REPORT INFORMATION
  Report Type: 
  Country: None (occurrence: None)
  Receive Date: 20101104
  Receipt Date: 20101021
  Transmission Date: 20110411
  Serious: Yes (Disabling, Other)
  Sender: FDA-Public Use
  Company Number: PHHY2010NL54036

PATIENT
  Sex: Male

DRUGS (8)
  1. ZOMETA [Suspect]
     Indication: PROSTATE CANCER
     Dosage: 4 MG/5 ML
     Route: 042
     Dates: start: 20100615
  2. ZOMETA [Suspect]
     Dosage: 4 MG/5 ML
     Dates: start: 20100726
  3. ZOMETA [Suspect]
     Dosage: 4 MG/5 ML
     Dates: start: 20100816
  4. PARACETAMOL [Concomitant]
     Dosage: 3X1G
  5. DICLOFENAC SODIUM [Concomitant]
     Dosage: 3X 50MG
  6. TRAMADOL HCL [Concomitant]
     Dosage: 3X 50MG
  7. PANTOPRAZOLE [Concomitant]
     Dosage: 1X 40MG
  8. ESTRADIOL [Concomitant]
     Dosage: 50 UG TWICE WEEKLY

REACTIONS (4)
  - ARTHRALGIA [None]
  - BONE PAIN [None]
  - FRACTURE [None]
  - PAIN IN EXTREMITY [None]
